FAERS Safety Report 11039306 (Version 2)
Quarter: 2015Q2

REPORT INFORMATION
  Report Type: Spontaneous
  Country: US (occurrence: US)
  Receive Date: 20150416
  Receipt Date: 20150623
  Transmission Date: 20150821
  Serious: No
  Sender: FDA-Public Use
  Company Number: US-GLAXOSMITHKLINE-US2015051253

PATIENT
  Sex: Female
  Weight: 251 kg

DRUGS (1)
  1. TANZEUM [Suspect]
     Active Substance: ALBIGLUTIDE
     Indication: TYPE 2 DIABETES MELLITUS
     Dosage: UNK
     Route: 058
     Dates: start: 20150129, end: 20150325

REACTIONS (5)
  - Abdominal pain [Unknown]
  - Constipation [Unknown]
  - Nausea [Recovered/Resolved]
  - Flatulence [Unknown]
  - Abdominal distension [Unknown]
